FAERS Safety Report 10733182 (Version 4)
Quarter: 2015Q2

REPORT INFORMATION
  Report Type: Spontaneous
  Country: SE (occurrence: SE)
  Receive Date: 20150123
  Receipt Date: 20150408
  Transmission Date: 20150821
  Serious: Yes (Hospitalization, Other)
  Sender: FDA-Public Use
  Company Number: SE-AMGEN-SWESP2014061812

PATIENT
  Age: 55 Year
  Sex: Male

DRUGS (7)
  1. ENBREL [Suspect]
     Active Substance: ETANERCEPT
     Indication: PSORIATIC ARTHROPATHY
     Dosage: 50 MG, WEEKLY
     Route: 058
     Dates: start: 20131021
  2. AMLODIPINE [Concomitant]
     Active Substance: AMLODIPINE BESYLATE
     Dosage: 10, MICROGRAM 1X/DAY
     Dates: start: 20131220
  3. ORUDIS [Concomitant]
     Active Substance: KETOPROFEN
     Dosage: UNK
     Dates: start: 200801
  4. NAPROXEN. [Concomitant]
     Active Substance: NAPROXEN
     Dosage: 1000 MG, UNK
     Dates: start: 20140422
  5. ENBREL [Suspect]
     Active Substance: ETANERCEPT
     Indication: PSORIASIS
     Dosage: UNK
     Route: 065
  6. DAIVOBET [Concomitant]
     Active Substance: BETAMETHASONE DIPROPIONATE\CALCIPOTRIENE
     Dosage: 50 MUG, DAILY
     Dates: start: 20141017
  7. CANODERM [Concomitant]
     Dosage: 5 %, 1X/DAY
     Dates: start: 20120411

REACTIONS (4)
  - Hypokalaemia [Unknown]
  - Peripheral swelling [Unknown]
  - Erysipelas [Recovered/Resolved]
  - Drug effect incomplete [Not Recovered/Not Resolved]

NARRATIVE: CASE EVENT DATE: 20131021
